FAERS Safety Report 10837797 (Version 1)
Quarter: 2015Q1

REPORT INFORMATION
  Report Type: Spontaneous
  Country: US (occurrence: US)
  Receive Date: 20150219
  Receipt Date: 20150219
  Transmission Date: 20150721
  Serious: Yes (Hospitalization, Other)
  Sender: FDA-Public Use
  Company Number: US-GLAXOSMITHKLINE-US2015021845

PATIENT
  Age: 59 Year
  Sex: Male

DRUGS (5)
  1. LATUDA [Suspect]
     Active Substance: LURASIDONE HYDROCHLORIDE
     Indication: BIPOLAR DISORDER
     Dosage: UNK
  2. TRILEPTAL [Concomitant]
     Active Substance: OXCARBAZEPINE
  3. LAMICTAL [Suspect]
     Active Substance: LAMOTRIGINE
     Indication: BIPOLAR DISORDER
     Dosage: 200 MG, 1D
  4. COGENTIN [Suspect]
     Active Substance: BENZTROPINE MESYLATE
     Indication: BIPOLAR DISORDER
     Dosage: UNK
  5. LITHIUM [Concomitant]
     Active Substance: LITHIUM CARBONATE

REACTIONS (1)
  - Extrapyramidal disorder [Recovered/Resolved]
